FAERS Safety Report 4958418-4 (Version None)
Quarter: 2006Q1

REPORT INFORMATION
  Report Type: 
  Country: None (occurrence: None)
  Receive Date: 20060330
  Receipt Date: 20060323
  Transmission Date: 20060701
  Serious: Yes (Life-Threatening)
  Sender: FDA-Public Use
  Company Number: CH-AVENTIS-200612957GDDC

PATIENT
  Age: 71 Year
  Sex: Female

DRUGS (10)
  1. FLAGYL [Suspect]
     Indication: DIVERTICULAR PERFORATION
     Route: 042
     Dates: start: 20060211, end: 20060225
  2. DEPAKENE [Suspect]
     Indication: EPILEPSY
     Route: 042
     Dates: start: 20060212
  3. NEXIUM [Suspect]
     Indication: GASTRIC ULCER
     Dates: start: 20060211, end: 20060225
  4. DIFLUCAN [Suspect]
     Indication: DIVERTICULAR PERFORATION
     Dosage: DOSE: 200 MG
     Route: 042
     Dates: start: 20060213, end: 20060218
  5. ROCEPHIN [Concomitant]
     Indication: DIVERTICULAR PERFORATION
     Dosage: DOSE: 1 G
     Route: 042
     Dates: start: 20060211, end: 20060220
  6. ROCEPHIN [Concomitant]
     Dosage: DOSE: 2 G
     Route: 042
     Dates: start: 20060220, end: 20060225
  7. HYDROCORTISONE [Concomitant]
     Indication: BRAIN NEOPLASM MALIGNANT
     Route: 042
     Dates: start: 20060214, end: 20060225
  8. TRAMAL [Concomitant]
     Indication: ABDOMINAL PAIN
     Dosage: DOSE: 75 MG
     Dates: start: 20060214, end: 20060216
  9. PERFALGAN [Concomitant]
     Indication: ABDOMINAL PAIN
     Dosage: DOSE: 1 G
     Dates: start: 20060214, end: 20060219
  10. DEXAMETHASONE TAB [Concomitant]
     Indication: BRAIN NEOPLASM MALIGNANT
     Dosage: DOSE: 1 MG
     Route: 048
     Dates: start: 20060212, end: 20060213

REACTIONS (8)
  - CHOLESTASIS [None]
  - DRUG LEVEL BELOW THERAPEUTIC [None]
  - DRUG LEVEL INCREASED [None]
  - HAEMOLYTIC ANAEMIA [None]
  - HYPERNATRAEMIA [None]
  - HYPOKALAEMIA [None]
  - POST PROCEDURAL COMPLICATION [None]
  - STATUS EPILEPTICUS [None]
